FAERS Safety Report 9918303 (Version 1)
Quarter: 2014Q1

REPORT INFORMATION
  Report Type: Report from Study
  Country: JP (occurrence: JP)
  Receive Date: 20140224
  Receipt Date: 20140224
  Transmission Date: 20141002
  Serious: Yes (Other)
  Sender: FDA-Public Use
  Company Number: JP-ROCHE-1349833

PATIENT
  Age: 68 Year
  Sex: Male

DRUGS (6)
  1. BEVACIZUMAB [Suspect]
     Indication: COLON CANCER
     Dosage: BIWEEKLY
     Route: 065
     Dates: start: 201001
  2. LEUCOVORIN CALCIUM [Suspect]
     Indication: COLON CANCER
     Route: 065
     Dates: start: 201001
  3. 5-FU [Suspect]
     Indication: COLON CANCER
     Route: 065
     Dates: start: 201001
  4. OXALIPLATIN [Suspect]
     Indication: COLON CANCER
     Route: 065
  5. IRINOTECAN [Suspect]
     Indication: COLON CANCER
     Route: 065
     Dates: start: 201001
  6. IRINOTECAN [Suspect]
     Route: 065

REACTIONS (2)
  - Interstitial lung disease [Recovering/Resolving]
  - Proteinuria [Unknown]
